FAERS Safety Report 4578503-9 (Version None)
Quarter: 2005Q1

REPORT INFORMATION
  Report Type: 
  Country: None (occurrence: None)
  Receive Date: 20050204
  Receipt Date: 20050204
  Transmission Date: 20050727
  Serious: Yes (Disabling)
  Sender: FDA-Public Use
  Company Number: None

PATIENT
  Age: 65 Year
  Sex: Female
  Weight: 61 kg

DRUGS (2)
  1. LEVAQUIN [Suspect]
     Dosage: ORAL
     Route: 048
     Dates: start: 20030801, end: 20030901
  2. LEVAQUIN [Suspect]
     Dosage: ORAL
     Route: 048
     Dates: start: 20031001, end: 20031101

REACTIONS (2)
  - POSTOPERATIVE INFECTION [None]
  - TENDON RUPTURE [None]
